FAERS Safety Report 21085189 (Version 1)
Quarter: 2022Q3

REPORT INFORMATION
  Report Type: Spontaneous
  Country: JP (occurrence: None)
  Receive Date: 20220714
  Receipt Date: 20220714
  Transmission Date: 20221026
  Serious: Yes (Other)
  Sender: FDA-Public Use
  Company Number: 2022A250299

PATIENT
  Age: 45 Year
  Sex: Female
  Weight: 49 kg

DRUGS (6)
  1. NEXIUM [Suspect]
     Active Substance: ESOMEPRAZOLE MAGNESIUM
     Indication: Prophylaxis against gastrointestinal ulcer
     Route: 048
     Dates: start: 20210722, end: 20210806
  2. LEVETIRACETAM [Suspect]
     Active Substance: LEVETIRACETAM
     Indication: Encephalopathy
     Route: 042
     Dates: start: 20210718, end: 20210720
  3. LEVETIRACETAM [Suspect]
     Active Substance: LEVETIRACETAM
     Indication: Encephalopathy
     Route: 048
     Dates: start: 20210721, end: 20210726
  4. LEVOFLOXACIN HEMIHYDRATE [Suspect]
     Active Substance: LEVOFLOXACIN
     Indication: Cystitis
     Route: 048
     Dates: start: 20210730, end: 20210805
  5. PREDONINE [Concomitant]
     Active Substance: PREDNISOLONE
     Indication: Acute disseminated encephalomyelitis
     Route: 048
     Dates: start: 20210722, end: 20210728
  6. PREDONINE [Concomitant]
     Active Substance: PREDNISOLONE
     Indication: Acute disseminated encephalomyelitis
     Route: 048
     Dates: start: 20210729, end: 20210810

REACTIONS (2)
  - Liver disorder [Recovering/Resolving]
  - Cystitis [Unknown]

NARRATIVE: CASE EVENT DATE: 20210726
